FAERS Safety Report 25487940 (Version 1)
Quarter: 2025Q2

REPORT INFORMATION
  Report Type: Spontaneous
  Country: GB (occurrence: GB)
  Receive Date: 20250627
  Receipt Date: 20250627
  Transmission Date: 20250717
  Serious: Yes (Other)
  Sender: TEVA
  Company Number: GB-MHRA-TPP18702454C4665498YC1750344170776

PATIENT
  Age: 33 Year
  Sex: Male
  Weight: 91 kg

DRUGS (4)
  1. VENLAFAXINE [Suspect]
     Active Substance: VENLAFAXINE HYDROCHLORIDE
     Indication: Ill-defined disorder
     Dosage: TAKE ONE DAILY, 75 MG DAILY
     Route: 065
     Dates: start: 20250613
  2. PROMETHAZINE HYDROCHLORIDE [Concomitant]
     Active Substance: PROMETHAZINE HYDROCHLORIDE
     Indication: Ill-defined disorder
     Dates: start: 20250613
  3. SERTRALINE [Concomitant]
     Active Substance: SERTRALINE HYDROCHLORIDE
     Indication: Ill-defined disorder
     Dosage: 2 DAILY, 2 DOSAGE FORMS DAILY, DURATION: 1.786 YEARS
     Dates: start: 20230906, end: 20250618
  4. MIRTAZAPINE [Concomitant]
     Active Substance: MIRTAZAPINE
     Indication: Ill-defined disorder
     Dosage: 1 AT BEDTIME,1 DOSAGE FORMS DAILY
     Dates: start: 20230619

REACTIONS (1)
  - Lip swelling [Recovering/Resolving]
